FAERS Safety Report 16246511 (Version 1)
Quarter: 2019Q2

REPORT INFORMATION
  Report Type: Report from Study
  Country: None (occurrence: CO)
  Receive Date: 20190427
  Receipt Date: 20190427
  Transmission Date: 20190711
  Serious: Yes (Other)
  Sender: FDA-Public Use
  Company Number: CO-ABBVIE-19K-036-2761369-00

PATIENT
  Age: 43 Year
  Sex: Male
  Weight: 91 kg

DRUGS (2)
  1. HUMIRA [Suspect]
     Active Substance: ADALIMUMAB
     Indication: PSORIATIC ARTHROPATHY
     Route: 058
     Dates: start: 20101019
  2. HUMIRA [Suspect]
     Active Substance: ADALIMUMAB
     Dosage: HUMIRA AC
     Route: 058
     Dates: end: 20190411

REACTIONS (6)
  - Fall [Recovering/Resolving]
  - Skin laceration [Unknown]
  - Skin fissures [Unknown]
  - Hypertension [Recovering/Resolving]
  - Injury [Recovering/Resolving]
  - Bone fissure [Recovering/Resolving]

NARRATIVE: CASE EVENT DATE: 2019
